FAERS Safety Report 20024894 (Version 1)
Quarter: 2021Q4

REPORT INFORMATION
  Report Type: Spontaneous
  Country: US (occurrence: US)
  Receive Date: 20211102
  Receipt Date: 20211102
  Transmission Date: 20220303
  Serious: Yes (Hospitalization, Other)
  Sender: FDA-Public Use
  Company Number: US-AUROBINDO-AUR-APL-2021-039856

PATIENT
  Age: 44 Year
  Sex: Female

DRUGS (10)
  1. CLOZAPINE [Suspect]
     Active Substance: CLOZAPINE
     Indication: Schizoaffective disorder
     Dosage: UNK
     Route: 048
  2. PERSA-GEL W [Concomitant]
     Indication: Acne
     Dosage: TWICE WEEK SUNDAY
     Route: 065
  3. BENZTROPINE [Concomitant]
     Active Substance: BENZTROPINE
     Indication: Schizoaffective disorder
     Dosage: 1 MILLIGRAM, TWO TIMES A DAY
     Route: 048
  4. SODIUM FLUORIDE [Concomitant]
     Active Substance: SODIUM FLUORIDE
     Indication: Tooth disorder
     Dosage: UNK UNK, TWO TIMES A DAY
     Route: 065
  5. DEBROX [Concomitant]
     Active Substance: CARBAMIDE PEROXIDE
     Indication: Cerumen impaction
     Dosage: 5-10 DROPS EACH EAR BID 4 DAYS/MO
     Route: 065
  6. FLUOXETINE [Concomitant]
     Active Substance: FLUOXETINE HYDROCHLORIDE
     Indication: Schizoaffective disorder
     Dosage: 20 MILLIGRAM, ONCE A DAY
     Route: 048
  7. HALOPERIDOL [Concomitant]
     Active Substance: HALOPERIDOL
     Indication: Schizoaffective disorder
     Dosage: 20 MILLIGRAM, 3 TIMES A DAY
     Route: 048
  8. SYNTHROID [Concomitant]
     Active Substance: LEVOTHYROXINE SODIUM
     Indication: Hypothyroidism
     Dosage: 75 MICROGRAM, ONCE A DAY
     Route: 048
  9. LORATADINE [Concomitant]
     Active Substance: LORATADINE
     Indication: Hypersensitivity
     Dosage: 10 MILLIGRAM, ONCE A DAY
     Route: 048
  10. SIMVASTATIN [Concomitant]
     Active Substance: SIMVASTATIN
     Indication: Blood cholesterol increased
     Dosage: 10 MILLIGRAM, ONCE A DAY
     Route: 048

REACTIONS (7)
  - Neutropenia [Unknown]
  - Sepsis [Not Recovered/Not Resolved]
  - Clostridium colitis [Not Recovered/Not Resolved]
  - Megacolon [Not Recovered/Not Resolved]
  - Nausea [Not Recovered/Not Resolved]
  - Vomiting [Not Recovered/Not Resolved]
  - Asthenia [Not Recovered/Not Resolved]

NARRATIVE: CASE EVENT DATE: 20210915
